FAERS Safety Report 26190607 (Version 1)
Quarter: 2025Q4

REPORT INFORMATION
  Report Type: Spontaneous
  Country: US (occurrence: None)
  Receive Date: 20251222
  Receipt Date: 20251222
  Transmission Date: 20260118
  Serious: Yes (Other)
  Sender: FDA-CTU
  Company Number: None

PATIENT
  Sex: Female

DRUGS (3)
  1. SERTRALINE [Suspect]
     Active Substance: SERTRALINE HYDROCHLORIDE
     Indication: Depression
     Dosage: 1 TABLET(S) DAILY ORAL
     Route: 048
     Dates: start: 20250901
  2. VITAMINS [Concomitant]
     Active Substance: VITAMINS
  3. B vitamin [Concomitant]

REACTIONS (3)
  - Vision blurred [None]
  - Product formulation issue [None]
  - Product complaint [None]

NARRATIVE: CASE EVENT DATE: 20250901
